FAERS Safety Report 5003397-7 (Version None)
Quarter: 2006Q2

REPORT INFORMATION
  Report Type: 
  Country: None (occurrence: None)
  Receive Date: 20060511
  Receipt Date: 20060502
  Transmission Date: 20061013
  Serious: Yes (Hospitalization)
  Sender: FDA-Public Use
  Company Number: 2006059708

PATIENT
  Age: 57 Year
  Sex: Male

DRUGS (10)
  1. ALDACTONE [Suspect]
     Indication: CARDIAC FAILURE CONGESTIVE
     Dosage: 12.5 MG (12.5 MG, IN THE MORNING), ORAL
     Route: 048
     Dates: start: 20060401
  2. LYRICA [Suspect]
     Indication: ILL-DEFINED DISORDER
     Dosage: 600 MG (300 MG, 1 IN 12 HR)
  3. ASPIRIN [Concomitant]
  4. DIAMICRON (GLICLAZIDE) [Concomitant]
  5. DIABEX (METFORMIN HYDROCHLORIDE) [Concomitant]
  6. RAMIPRIL [Concomitant]
  7. IMDUR [Concomitant]
  8. PROTAPHAN            (INSULIN ISOPHANE, HUMAN BIOSYNTHETIC) [Concomitant]
  9. FUROSEMIDE [Concomitant]
  10. PANADEINE FORTE (CODEINE PHOSPHATE, PARACETAMOL) [Concomitant]

REACTIONS (1)
  - RENAL IMPAIRMENT [None]
